FAERS Safety Report 6982484-8 (Version None)
Quarter: 2010Q3

REPORT INFORMATION
  Report Type: 
  Country: None (occurrence: None)
  Receive Date: 20100914
  Receipt Date: 20100119
  Transmission Date: 20110219
  Serious: No
  Sender: FDA-Public Use
  Company Number: US-PFIZER INC-2010008583

PATIENT
  Sex: Female
  Weight: 88.44 kg

DRUGS (1)
  1. LYRICA [Suspect]
     Indication: SURGERY
     Dosage: 75 MG, 4X/DAY
     Route: 048
     Dates: start: 20100117

REACTIONS (6)
  - HEADACHE [None]
  - HYPERSOMNIA [None]
  - INCOHERENT [None]
  - LETHARGY [None]
  - SEDATION [None]
  - SOMNOLENCE [None]
